FAERS Safety Report 7813424-7 (Version None)
Quarter: 2011Q4

REPORT INFORMATION
  Report Type: 
  Country: None (occurrence: None)
  Receive Date: 20111014
  Receipt Date: 20111007
  Transmission Date: 20120403
  Serious: Yes (Hospitalization)
  Sender: FDA-Public Use
  Company Number: US-BIOGENIDEC-2008BI023667

PATIENT
  Age: 60 Year
  Sex: Male

DRUGS (1)
  1. AVONEX [Suspect]
     Indication: MULTIPLE SCLEROSIS
     Route: 030
     Dates: start: 20070630, end: 20080801

REACTIONS (6)
  - CYSTITIS [None]
  - RENAL FAILURE ACUTE [None]
  - PARALYSIS [None]
  - IRON METABOLISM DISORDER [None]
  - FATIGUE [None]
  - ANAEMIA [None]
